FAERS Safety Report 4333135-2 (Version None)
Quarter: 2004Q2

REPORT INFORMATION
  Report Type: 
  Country: None (occurrence: None)
  Receive Date: 20040406
  Receipt Date: 20030321
  Transmission Date: 20050107
  Serious: Yes (Other)
  Sender: FDA-Public Use
  Company Number: PHEH2003US02566

PATIENT
  Age: 58 Year
  Sex: Male
  Weight: 82 kg

DRUGS (6)
  1. THALIDOMIDE [Concomitant]
     Indication: MULTIPLE MYELOMA
     Dates: start: 20021001, end: 20030501
  2. ZOMETA [Suspect]
     Indication: MULTIPLE MYELOMA
     Dosage: 4 MG, UNK
     Route: 042
     Dates: start: 20021016
  3. ALKERAN [Concomitant]
     Indication: MULTIPLE MYELOMA
     Dates: start: 20021001, end: 20030501
  4. PREDNISONE [Concomitant]
     Indication: MULTIPLE MYELOMA
     Dates: start: 20021001, end: 20030501
  5. RESTORIL [Concomitant]
  6. PERCOCET [Concomitant]

REACTIONS (8)
  - ASEPTIC NECROSIS BONE [None]
  - BONE DENSITY DECREASED [None]
  - DENTAL TREATMENT [None]
  - FIBROMA [None]
  - INFECTION [None]
  - PAIN [None]
  - PERIODONTAL DISEASE [None]
  - TOOTH EXTRACTION [None]
